FAERS Safety Report 9725552 (Version 1)
Quarter: 2013Q4

REPORT INFORMATION
  Report Type: Spontaneous
  Country: US (occurrence: None)
  Receive Date: 20131202
  Receipt Date: 20131202
  Transmission Date: 20140711
  Serious: Yes (Disabling)
  Sender: FDA-Public Use
  Company Number: None

PATIENT
  Age: 69 Year
  Sex: Female

DRUGS (2)
  1. LEVAQUIN 500 MG. JANSSEN [Suspect]
     Indication: SINUS DISORDER
     Route: 048
     Dates: start: 20100619, end: 20100626
  2. LEVAQUIN 500 MG. JANSSEN [Suspect]
     Indication: EAR INFECTION
     Route: 048
     Dates: start: 20100619, end: 20100626

REACTIONS (4)
  - Tendonitis [None]
  - Neuropathy peripheral [None]
  - Cartilage injury [None]
  - Arthropathy [None]
